FAERS Safety Report 16982692 (Version 2)
Quarter: 2019Q4

REPORT INFORMATION
  Report Type: Spontaneous
  Country: CH (occurrence: CH)
  Receive Date: 20191101
  Receipt Date: 20191125
  Transmission Date: 20200122
  Serious: Yes (Other)
  Sender: FDA-Public Use
  Company Number: CH-MYLANLABS-2019M1100817

PATIENT
  Sex: Female
  Weight: 54 kg

DRUGS (2)
  1. CYKLOKAPRON [Suspect]
     Active Substance: TRANEXAMIC ACID
     Indication: POSTOPERATIVE CARE
  2. CYKLOKAPRON [Suspect]
     Active Substance: TRANEXAMIC ACID
     Indication: PREOPERATIVE CARE
     Dosage: 2 HOURS BEFORE THE SURGERY 2 TABLETS THEN AFTER THE SURGERY 3 TO 4 TIMES
     Route: 065
     Dates: start: 20191022, end: 20191022

REACTIONS (1)
  - Product prescribing error [Unknown]

NARRATIVE: CASE EVENT DATE: 20191021
